FAERS Safety Report 7458573-0 (Version None)
Quarter: 2011Q2

REPORT INFORMATION
  Report Type: 
  Country: None (occurrence: None)
  Receive Date: 20110504
  Receipt Date: 20080114
  Transmission Date: 20111010
  Serious: Yes (Disabling, Other)
  Sender: FDA-Public Use
  Company Number: US-BAYER-200811127NA

PATIENT
  Age: 69 Year
  Sex: Male
  Weight: 102.4 kg

DRUGS (23)
  1. TRASYLOL [Suspect]
     Dosage: 200 ML, PUMP PRIME
     Route: 042
     Dates: start: 20060611, end: 20060611
  2. TRASYLOL [Suspect]
     Dosage: 200 ML, LOADING DOSE
     Route: 042
     Dates: start: 20060611, end: 20060611
  3. PREDNISONE [Concomitant]
     Indication: MULTIPLE MYELOMA
     Dosage: 5 MG, BID LONG TERM
     Route: 048
  4. LORTAB [Concomitant]
     Dosage: 4.5/500 MG EVERY 6 HOURS IF NEEDED
     Route: 048
     Dates: start: 20060309
  5. DIPRIVAN [Concomitant]
     Dosage: UNK
     Dates: start: 20060611, end: 20060611
  6. ANCEF [Concomitant]
     Dosage: 2 MG, UNK
     Route: 042
     Dates: start: 20060611
  7. VERSED [Concomitant]
     Dosage: 20 MG, UNK
     Route: 042
     Dates: start: 20060611, end: 20060611
  8. PREVACID [Concomitant]
     Dosage: 30 MG, QD
     Route: 048
     Dates: start: 20060310
  9. FLOMAX [Concomitant]
     Dosage: 0.4 MG, QD
     Route: 048
     Dates: start: 20060310
  10. MANNITOL [Concomitant]
     Dosage: FOR PRIME
     Dates: start: 20060611, end: 20060611
  11. LYRICA [Concomitant]
     Dosage: 50 MG, TID
     Route: 048
  12. FENTANYL [Concomitant]
     Dosage: 20 ML, UNK
     Route: 042
     Dates: start: 20060611, end: 20060611
  13. TRASYLOL [Suspect]
     Dosage: 50 ML, Q1HR INFUSION
     Route: 042
     Dates: start: 20060611, end: 20060612
  14. GLYBURIDE [Concomitant]
     Dosage: 5 MG BEFORE BREAKFAST AND SUPPER
     Route: 048
     Dates: start: 20060310
  15. TRIAMTERENE [Concomitant]
     Dosage: QD LONGTERM
     Route: 048
  16. HYDROMORPHONE [Concomitant]
  17. HEPARIN [Concomitant]
     Dosage: 3000 U, UNK
     Route: 042
     Dates: start: 20060611, end: 20060611
  18. TRASYLOL [Suspect]
     Indication: INTRA-THORACIC AORTIC ANEURYSM REPAIR
     Dosage: 1 ML, TEST DOSE
     Route: 042
     Dates: start: 20060611, end: 20060611
  19. ZITHROMAX [Concomitant]
     Dosage: 250 MG, FOR 7 DAYS
     Route: 048
     Dates: start: 20060310
  20. ELAVIL [Concomitant]
     Dosage: 10 MG, QD
     Route: 048
     Dates: start: 20060310
  21. ESMOLOL [Concomitant]
     Dosage: UNK
     Route: 042
     Dates: start: 20060611
  22. PROTAMINE SULFATE [Concomitant]
     Dosage: 400 MG, UNK
     Route: 042
     Dates: start: 20060611, end: 20060611
  23. PANCURONIUM BROMIDE [Concomitant]
     Dosage: 10 ML, UNK
     Route: 042
     Dates: start: 20060611, end: 20060611

REACTIONS (10)
  - RENAL FAILURE ACUTE [None]
  - INJURY [None]
  - NERVOUSNESS [None]
  - DEPRESSION [None]
  - MENTAL DISORDER [None]
  - EMOTIONAL DISTRESS [None]
  - FEAR OF DEATH [None]
  - PAIN [None]
  - ANXIETY [None]
  - FEAR [None]
